FAERS Safety Report 17042285 (Version 1)
Quarter: 2019Q4

REPORT INFORMATION
  Report Type: Spontaneous
  Country: US (occurrence: US)
  Receive Date: 20191114
  Receipt Date: 20191114
  Transmission Date: 20200122
  Serious: Yes (Disabling)
  Sender: FDA-Public Use
  Company Number: None

PATIENT
  Age: 57 Year
  Sex: Female
  Weight: 72 kg

DRUGS (2)
  1. LIDA GOLD [HERBALS] [Suspect]
     Active Substance: HERBALS
     Indication: WEIGHT CONTROL
     Dosage: ?          QUANTITY:2 CAPSULE(S);?
     Route: 048
     Dates: start: 20190410, end: 20190412
  2. LIDA PLUS [HERBALS] [Suspect]
     Active Substance: HERBALS
     Indication: WEIGHT CONTROL
     Dosage: ?          QUANTITY:1 CAPSULE(S);?
     Route: 048
     Dates: start: 20190501, end: 20190502

REACTIONS (2)
  - Tremor [None]
  - Blood pressure increased [None]

NARRATIVE: CASE EVENT DATE: 20190501
